FAERS Safety Report 16766265 (Version 1)
Quarter: 2019Q3

REPORT INFORMATION
  Report Type: Spontaneous
  Country: FR (occurrence: FR)
  Receive Date: 20190903
  Receipt Date: 20190903
  Transmission Date: 20191005
  Serious: Yes (Death, Congenital Anomaly, Other)
  Sender: FDA-Public Use
  Company Number: FR-PFIZER INC-2019369323

PATIENT
  Age: 1 Day
  Sex: Female

DRUGS (8)
  1. DEPAKINE CHRONO [Suspect]
     Active Substance: VALPROATE SODIUM
     Dosage: 2000 MG, QD
     Route: 064
     Dates: start: 19960304, end: 19961021
  2. GABAPENTIN. [Suspect]
     Active Substance: GABAPENTIN
     Dosage: 1500 MG, QD
     Route: 064
     Dates: start: 19960304, end: 19961021
  3. TRANXENE [Concomitant]
     Active Substance: CLORAZEPATE DIPOTASSIUM
     Dosage: UNK
     Route: 064
     Dates: start: 199610
  4. SPECIAFOLDINE [Concomitant]
     Active Substance: FOLIC ACID
     Indication: PROPHYLAXIS
     Dosage: 3 DF, QD
     Route: 064
     Dates: start: 19960320
  5. DEPAKINE CHRONO [Suspect]
     Active Substance: VALPROATE SODIUM
     Indication: CONVERSION DISORDER
     Dosage: UNK
     Route: 064
     Dates: start: 1993, end: 1997
  6. URBANYL [Concomitant]
     Active Substance: CLOBAZAM
     Dosage: UNK
     Route: 064
     Dates: start: 199610
  7. DEPAKINE CHRONO [Suspect]
     Active Substance: VALPROATE SODIUM
     Dosage: 2500 MG, QD
     Route: 064
     Dates: start: 199610
  8. ALDOMET [Concomitant]
     Active Substance: METHYLDOPA
     Indication: HYPERTENSION
     Dosage: UNK
     Route: 064

REACTIONS (47)
  - Congenital hydronephrosis [Fatal]
  - Gastroenteritis Escherichia coli [Fatal]
  - Vomiting [Fatal]
  - Urethral dilatation [Fatal]
  - Congenital neurological disorder [Fatal]
  - Microphthalmos [Fatal]
  - Hair growth abnormal [Fatal]
  - Maternal exposure during pregnancy [Fatal]
  - Pulmonary arterial hypertension [Fatal]
  - Abdominal distension [Fatal]
  - Intestinal malrotation [Fatal]
  - Neonatal respiratory distress [Fatal]
  - Congenital hypertrichosis [Fatal]
  - Bradycardia neonatal [Fatal]
  - Dyspnoea [Fatal]
  - Atrial septal defect [Fatal]
  - Urinary tract disorder [Fatal]
  - Hirsutism [Fatal]
  - Myoclonus [Fatal]
  - Dyskinesia neonatal [Fatal]
  - Neonatal aspiration [Fatal]
  - Pelvi-ureteric obstruction [Fatal]
  - Moaning [Fatal]
  - Ventricular septal defect [Fatal]
  - Dysmorphism [Fatal]
  - Skull malformation [Fatal]
  - Bone deformity [Fatal]
  - Conduction disorder [Fatal]
  - Hypotonia neonatal [Fatal]
  - Congenital central nervous system anomaly [Fatal]
  - Neonatal intestinal obstruction [Fatal]
  - Congenital hepatomegaly [Fatal]
  - Infantile vomiting [Fatal]
  - Gastric residual assessment [Fatal]
  - Seizure [Fatal]
  - Hypoglycaemia neonatal [Fatal]
  - Cardiac murmur [Fatal]
  - Cyanosis neonatal [Fatal]
  - Congenital nipple anomaly [Fatal]
  - Tremor [Fatal]
  - Congenital cerebral cyst [Fatal]
  - Benign congenital hypotonia [Fatal]
  - Neonatal disorder [Fatal]
  - Congenital hand malformation [Fatal]
  - Brain stem syndrome [Fatal]
  - Hypertonia [Fatal]
  - Foetal heart rate decreased [Fatal]

NARRATIVE: CASE EVENT DATE: 19961022
